FAERS Safety Report 12697903 (Version 1)
Quarter: 2016Q3

REPORT INFORMATION
  Report Type: Spontaneous
  Country: US (occurrence: US)
  Receive Date: 20160830
  Receipt Date: 20160830
  Transmission Date: 20161109
  Serious: No
  Sender: FDA-Public Use
  Company Number: GXBR2015US002763

PATIENT
  Age: 65 Year
  Sex: Male

DRUGS (2)
  1. ZINC OXIDE. [Suspect]
     Active Substance: ZINC OXIDE
     Indication: ACNE
     Dosage: UNK DF, UNK
     Route: 061
  2. ZINC OXIDE. [Suspect]
     Active Substance: ZINC OXIDE
     Indication: RASH

REACTIONS (1)
  - Condition aggravated [Not Recovered/Not Resolved]
